FAERS Safety Report 24705157 (Version 4)
Quarter: 2025Q1

REPORT INFORMATION
  Report Type: Spontaneous
  Country: US (occurrence: US)
  Receive Date: 20241206
  Receipt Date: 20250305
  Transmission Date: 20250409
  Serious: Yes (Hospitalization, Other)
  Sender: GERON CORP
  Company Number: US-GERON CORPORATION-US-GER-24-000167

PATIENT
  Sex: Female
  Weight: 94 kg

DRUGS (1)
  1. RYTELO [Suspect]
     Active Substance: IMETELSTAT SODIUM
     Indication: Myelodysplastic syndrome
     Route: 065
     Dates: start: 20241101, end: 20241101

REACTIONS (5)
  - Cardiac failure congestive [Not Recovered/Not Resolved]
  - Haemoglobin decreased [Not Recovered/Not Resolved]
  - Thrombocytopenia [Unknown]
  - Insomnia [Not Recovered/Not Resolved]
  - Therapy non-responder [Unknown]

NARRATIVE: CASE EVENT DATE: 20240101
